FAERS Safety Report 21140501 (Version 3)
Quarter: 2022Q3

REPORT INFORMATION
  Report Type: Report from Study
  Country: CA (occurrence: CA)
  Receive Date: 20220728
  Receipt Date: 20220822
  Transmission Date: 20221026
  Serious: Yes (Hospitalization, Other)
  Sender: FDA-Public Use
  Company Number: CA-BRISTOL-MYERS SQUIBB COMPANY-2022-042414

PATIENT
  Age: 79 Year
  Sex: Male
  Weight: 75 kg

DRUGS (8)
  1. OPDIVO [Suspect]
     Active Substance: NIVOLUMAB
     Indication: Pleural mesothelioma
     Route: 042
     Dates: start: 20220513
  2. OPDIVO [Suspect]
     Active Substance: NIVOLUMAB
     Route: 042
     Dates: start: 20220513
  3. YERVOY [Suspect]
     Active Substance: IPILIMUMAB
     Indication: Pleural mesothelioma
     Dosage: 30 SEP 2024
     Route: 042
     Dates: start: 20220513
  4. MAGNESIUM [MAGNESIUM HYDROXIDE] [Concomitant]
     Indication: Product used for unknown indication
     Route: 065
  5. FLOVENT-AS [Concomitant]
     Indication: Product used for unknown indication
     Route: 065
  6. MORPHINE [Concomitant]
     Active Substance: MORPHINE
     Indication: Product used for unknown indication
     Route: 065
  7. LAX A DAY [Concomitant]
     Indication: Product used for unknown indication
     Route: 065
  8. PRN OF CHEMO [Concomitant]
     Indication: Product used for unknown indication
     Route: 065

REACTIONS (20)
  - Loss of consciousness [Unknown]
  - Blood pressure abnormal [Unknown]
  - Ascites [Unknown]
  - Infusion related reaction [Recovered/Resolved]
  - Chills [Recovered/Resolved]
  - Tremor [Recovered/Resolved]
  - Blood pressure increased [Recovered/Resolved]
  - Heart rate increased [Recovered/Resolved]
  - Hypotension [Recovered/Resolved]
  - Pruritus [Recovered/Resolved]
  - Dizziness [Recovering/Resolving]
  - Dyspnoea [Unknown]
  - Chest pain [Recovered/Resolved]
  - Diarrhoea [Unknown]
  - Weight decreased [Not Recovered/Not Resolved]
  - Dry skin [Recovered/Resolved]
  - Decreased appetite [Not Recovered/Not Resolved]
  - Fatigue [Recovered/Resolved]
  - Headache [Unknown]
  - Tachycardia [Unknown]

NARRATIVE: CASE EVENT DATE: 20220610
